FAERS Safety Report 14651075 (Version 1)
Quarter: 2018Q1

REPORT INFORMATION
  Report Type: Spontaneous
  Country: US (occurrence: US)
  Receive Date: 20180316
  Receipt Date: 20180316
  Transmission Date: 20180509
  Serious: No
  Sender: FDA-Public Use
  Company Number: US-BEH-2018088767

PATIENT
  Age: 66 Year
  Sex: Female
  Weight: 100 kg

DRUGS (1)
  1. ZEMAIRA [Suspect]
     Active Substance: .ALPHA.1-PROTEINASE INHIBITOR HUMAN
     Indication: ALPHA-1 ANTI-TRYPSIN DEFICIENCY
     Dosage: 6114 MG, QW
     Route: 042
     Dates: start: 20180228, end: 20180228

REACTIONS (4)
  - Dizziness [Unknown]
  - Feeling hot [Unknown]
  - Flushing [Unknown]
  - Tinnitus [Unknown]

NARRATIVE: CASE EVENT DATE: 20180228
